FAERS Safety Report 19173252 (Version 2)
Quarter: 2021Q2

REPORT INFORMATION
  Report Type: Spontaneous
  Country: JP (occurrence: JP)
  Receive Date: 20210423
  Receipt Date: 20210426
  Transmission Date: 20210717
  Serious: Yes (Hospitalization, Other)
  Sender: FDA-Public Use
  Company Number: JP-ALLERGAN-2115906US

PATIENT
  Sex: Female
  Weight: 2.74 kg

DRUGS (2)
  1. NO SUSPECT ALLERGAN PRODUCT [Suspect]
     Active Substance: UNSPECIFIED INGREDIENT
     Indication: COLITIS ULCERATIVE
     Route: 065
  2. PENTASA [Suspect]
     Active Substance: MESALAMINE
     Indication: COLITIS ULCERATIVE
     Dosage: FROM EARLY GESTATION TO DELIVERY
     Route: 064

REACTIONS (5)
  - Asphyxia [Recovered/Resolved]
  - Meconium aspiration syndrome [Recovered/Resolved]
  - Gastrointestinal haemorrhage [Recovered/Resolved]
  - Pulmonary hypertension [Recovered/Resolved]
  - Premature delivery [Unknown]
